FAERS Safety Report 6855018-6 (Version None)
Quarter: 2010Q3

REPORT INFORMATION
  Report Type: 
  Country: None (occurrence: None)
  Receive Date: 20100717
  Receipt Date: 20080429
  Transmission Date: 20110219
  Serious: No
  Sender: FDA-Public Use
  Company Number: US-PFIZER INC-2008001122

PATIENT
  Sex: Female

DRUGS (1)
  1. CHANTIX [Suspect]
     Indication: SMOKING CESSATION THERAPY
     Dates: start: 20071209, end: 20071223

REACTIONS (26)
  - ABDOMINAL DISTENSION [None]
  - ABNORMAL DREAMS [None]
  - AGITATION [None]
  - ARTHRALGIA [None]
  - BALANCE DISORDER [None]
  - BREAST PAIN [None]
  - BREAST SWELLING [None]
  - CONSTIPATION [None]
  - DYSGEUSIA [None]
  - DYSPHONIA [None]
  - FLATULENCE [None]
  - GASTROINTESTINAL MOTILITY DISORDER [None]
  - HEADACHE [None]
  - HYPERSENSITIVITY [None]
  - INCREASED APPETITE [None]
  - JOINT STIFFNESS [None]
  - NAUSEA [None]
  - NIGHT SWEATS [None]
  - OEDEMA PERIPHERAL [None]
  - ORAL DISCOMFORT [None]
  - OROPHARYNGEAL PAIN [None]
  - PAIN IN EXTREMITY [None]
  - PAROSMIA [None]
  - POLLAKIURIA [None]
  - TINNITUS [None]
  - VOMITING [None]
